FAERS Safety Report 9436138 (Version 1)
Quarter: 2013Q3

REPORT INFORMATION
  Report Type: Spontaneous
  Country: US (occurrence: US)
  Receive Date: 20130801
  Receipt Date: 20130801
  Transmission Date: 20140515
  Serious: Yes (Other)
  Sender: FDA-Public Use
  Company Number: US-BAXTER-2013BAX030484

PATIENT
  Sex: 0

DRUGS (1)
  1. VANCOMYCIN INJECTION, USP [Suspect]
     Indication: BACTERIAL INFECTION

REACTIONS (1)
  - Renal failure acute [Recovered/Resolved]
